FAERS Safety Report 5275430-9 (Version None)
Quarter: 2007Q1

REPORT INFORMATION
  Report Type: 
  Country: None (occurrence: None)
  Receive Date: 20070326
  Receipt Date: 20070320
  Transmission Date: 20070707
  Serious: Yes (Life-Threatening, Hospitalization)
  Sender: FDA-Public Use
  Company Number: AU-ROCHE-443861

PATIENT
  Age: 51 Year
  Sex: Male
  Weight: 55 kg

DRUGS (13)
  1. CAPECITABINE [Suspect]
     Indication: GASTRIC CANCER
     Dosage: GIVEN FROM DAYS ONE TO FOURTEEN OF A THREE WEEK CYCLE.
     Route: 048
     Dates: start: 20060330, end: 20060408
  2. CAPECITABINE [Suspect]
     Dosage: ON DAYS ONE TO FOURTEEN EVERY THREE WEEKS
     Route: 048
     Dates: start: 20060409, end: 20060517
  3. CISPLATIN [Suspect]
     Indication: GASTRIC CANCER
     Dosage: GIVEN ON DAYS ONE OF A THREE WEEK CYCLE.
     Route: 042
     Dates: start: 20060330, end: 20060511
  4. ENDONE [Concomitant]
     Dosage: AS NEEDED
     Dates: start: 20060224, end: 20060516
  5. PANTOPRAZOLE SODIUM [Concomitant]
  6. NILSTAT [Concomitant]
  7. TEMAZEPAM [Concomitant]
     Dosage: AS NEEDED
  8. FISH OIL [Concomitant]
  9. MAXOLON [Concomitant]
     Dosage: AS NEEDED
     Dates: start: 20060430, end: 20060516
  10. NAVOBAN [Concomitant]
     Dates: start: 20060508, end: 20060516
  11. ATIVAN [Concomitant]
     Dates: start: 20060508, end: 20060516
  12. COLOXYL WITH SENNA [Concomitant]
     Dates: start: 20060330, end: 20060516
  13. DEXAMETHASONE [Concomitant]
     Dates: start: 20060508, end: 20060516

REACTIONS (3)
  - GRAND MAL CONVULSION [None]
  - NAUSEA [None]
  - VOMITING [None]
